FAERS Safety Report 5002413-6 (Version None)
Quarter: 2006Q2

REPORT INFORMATION
  Report Type: 
  Country: None (occurrence: None)
  Receive Date: 20060510
  Receipt Date: 20060501
  Transmission Date: 20061013
  Serious: Yes (Other)
  Sender: FDA-Public Use
  Company Number: 2006058610

PATIENT
  Age: 65 Year
  Sex: Male
  Weight: 73.9363 kg

DRUGS (1)
  1. LIPITOR [Suspect]
     Indication: BLOOD CHOLESTEROL
     Dosage: 20 MG (20 MG, 1 IN 1 D), ORAL
     Route: 048
     Dates: start: 20060101, end: 20060301

REACTIONS (6)
  - DYSKINESIA [None]
  - DYSPHASIA [None]
  - DYSPNOEA [None]
  - FACIAL PALSY [None]
  - TREMOR [None]
  - WEIGHT DECREASED [None]
